FAERS Safety Report 17420241 (Version 3)
Quarter: 2020Q2

REPORT INFORMATION
  Report Type: Spontaneous
  Country: US (occurrence: US)
  Receive Date: 20200214
  Receipt Date: 20200526
  Transmission Date: 20200713
  Serious: No
  Sender: FDA-Public Use
  Company Number: US-VERTEX PHARMACEUTICALS-2019-013128

PATIENT
  Age: 34 Year
  Sex: Female

DRUGS (28)
  1. AZITHROMYCIN ANHYDROUS. [Concomitant]
     Active Substance: AZITHROMYCIN ANHYDROUS
  2. NASONEX [Concomitant]
     Active Substance: MOMETASONE FUROATE
  3. NOVOLOG [Concomitant]
     Active Substance: INSULIN ASPART
  4. OMEPRAZOLE. [Concomitant]
     Active Substance: OMEPRAZOLE
  5. RANITIDINE. [Concomitant]
     Active Substance: RANITIDINE
  6. SYMBICORT [Concomitant]
     Active Substance: BUDESONIDE\FORMOTEROL FUMARATE DIHYDRATE
  7. TOBI PODHALER [Concomitant]
     Active Substance: TOBRAMYCIN
  8. VANCOMYCIN [Concomitant]
     Active Substance: VANCOMYCIN
  9. ALBUTEROL [SALBUTAMOL] [Concomitant]
     Active Substance: ALBUTEROL
  10. GABAPENTIN. [Concomitant]
     Active Substance: GABAPENTIN
  11. LEVOTHYROXIN [Concomitant]
     Active Substance: LEVOTHYROXINE
  12. METOCLOPRAM [Concomitant]
     Active Substance: METOCLOPRAMIDE
  13. SUDAFED NASAL DECONGESTANT MAXIMUM STRENGTH [Concomitant]
     Active Substance: PSEUDOEPHEDRINE HYDROCHLORIDE
  14. TRIKAFTA [Suspect]
     Active Substance: ELEXACAFTOR\IVACAFTOR\TEZACAFTOR
     Dosage: 2 TABLETS QAM, 1 TABLET QPM
     Route: 048
     Dates: start: 20191221
  15. LANTUS [Concomitant]
     Active Substance: INSULIN GLARGINE
  16. PANCRELIPASE. [Concomitant]
     Active Substance: PANCRELIPASE
  17. TRIKAFTA [Suspect]
     Active Substance: ELEXACAFTOR\IVACAFTOR\TEZACAFTOR
     Indication: CYSTIC FIBROSIS
     Dosage: 100MG ELEXACAFTOR/50MG TEZACAFTOR/75MG IVACAFTOR AND 150MG IVACAFTOR (REDUCED)
     Route: 048
     Dates: start: 20191122
  18. SINGULAIR [Concomitant]
     Active Substance: MONTELUKAST SODIUM
  19. VITAMIN E [Concomitant]
     Active Substance: .ALPHA.-TOCOPHEROL
  20. TRIKAFTA [Suspect]
     Active Substance: ELEXACAFTOR\IVACAFTOR\TEZACAFTOR
     Dosage: ALTERNATE DOSE B/W AM +PM DOSE  ONCE/DAY
     Route: 048
  21. MEPHYTON [Concomitant]
     Active Substance: PHYTONADIONE
  22. BUPROPION. [Concomitant]
     Active Substance: BUPROPION
  23. CALCIUM CARBONATE. [Concomitant]
     Active Substance: CALCIUM CARBONATE
  24. CAYSTON [Concomitant]
     Active Substance: AZTREONAM
  25. FERREX 150 FORTE [Concomitant]
     Active Substance: CYANOCOBALAMIN\FOLIC ACID\IRON
  26. HYDROXYZINE PAMOATE. [Concomitant]
     Active Substance: HYDROXYZINE PAMOATE
  27. PULMOZYME [Concomitant]
     Active Substance: DORNASE ALFA
  28. XOPENEX HFA [Concomitant]
     Active Substance: LEVALBUTEROL TARTRATE

REACTIONS (20)
  - Cough [Recovering/Resolving]
  - Joint stiffness [Not Recovered/Not Resolved]
  - Blood glucose decreased [Not Recovered/Not Resolved]
  - Dysphagia [Unknown]
  - Respiratory tract infection [Recovered/Resolved]
  - Gastrointestinal sounds abnormal [Not Recovered/Not Resolved]
  - Vision blurred [Unknown]
  - Weight decreased [Not Recovered/Not Resolved]
  - Muscle fatigue [Not Recovered/Not Resolved]
  - Dry mouth [Not Recovered/Not Resolved]
  - Menstrual disorder [Unknown]
  - Pain [Not Recovered/Not Resolved]
  - Fatigue [Not Recovered/Not Resolved]
  - Chromaturia [Recovered/Resolved]
  - Nausea [Recovered/Resolved]
  - Dry eye [Not Recovered/Not Resolved]
  - Cervical discharge [Unknown]
  - Insomnia [Recovered/Resolved]
  - Myalgia [Not Recovered/Not Resolved]
  - Arthralgia [Not Recovered/Not Resolved]

NARRATIVE: CASE EVENT DATE: 2019
